FAERS Safety Report 24381011 (Version 1)
Quarter: 2024Q3

REPORT INFORMATION
  Report Type: Spontaneous
  Country: US (occurrence: US)
  Receive Date: 20240930
  Receipt Date: 20240930
  Transmission Date: 20241017
  Serious: No
  Sender: BAUSCH AND LOMB
  Company Number: US-BAUSCHBL-2024BNL033914

PATIENT
  Age: 68 Year
  Sex: Female

DRUGS (2)
  1. ALAWAY [Suspect]
     Active Substance: KETOTIFEN FUMARATE
     Indication: Eye pruritus
     Dosage: 2 DROPS INTO EACH EYE ONCE
     Route: 047
  2. ADVANCED EYE RELIEF DRY EYE REJUVENATION [Suspect]
     Active Substance: GLYCERIN\PROPYLENE GLYCOL
     Indication: Dry eye
     Dosage: 1 DROP INTO EACH EYE ONCE DAILY IN THE MORNING
     Route: 047

REACTIONS (3)
  - Eye irritation [Unknown]
  - Eye pain [Unknown]
  - Eye pruritus [Unknown]
